FAERS Safety Report 7992807 (Version 5)
Quarter: 2013Q1

REPORT INFORMATION
  Report Type: Spontaneous
  Country: AR (occurrence: AR)
  Receive Date: 20110615
  Receipt Date: 20130327
  Transmission Date: 20140127
  Serious: Yes (Death, Hospitalization, Other)
  Sender: FDA-Public Use
  Company Number: AR-ROCHE-GNE320119

PATIENT
  Sex: Female

DRUGS (2)
  1. XOLAIR [Suspect]
     Indication: BRONCHIAL DISORDER
     Dosage: VIAL
     Route: 065
     Dates: start: 201107
  2. XOLAIR [Suspect]
     Dosage: VIAL
     Route: 065
     Dates: start: 201112, end: 201203

REACTIONS (5)
  - Cardiac arrest [Fatal]
  - Bronchitis [Fatal]
  - Asthmatic crisis [Not Recovered/Not Resolved]
  - Pneumonia [Recovering/Resolving]
  - Condition aggravated [Not Recovered/Not Resolved]
